FAERS Safety Report 5509795-7 (Version None)
Quarter: 2007Q4

REPORT INFORMATION
  Report Type: 
  Country: None (occurrence: None)
  Receive Date: 20071107
  Receipt Date: 20071107
  Transmission Date: 20080405
  Serious: No
  Sender: FDA-Public Use
  Company Number: None

PATIENT
  Age: 73 Year
  Sex: Male

DRUGS (3)
  1. POTASSIUM CHLORIDE [Suspect]
     Indication: HYPOKALAEMIA
     Dosage: 20MEQ EVERY DAY PO
     Route: 048
     Dates: start: 20050715, end: 20070720
  2. POTASSIUM CHLORIDE [Suspect]
     Indication: PAIN
     Dosage: 20MEQ EVERY DAY PO
     Route: 048
     Dates: start: 20050715, end: 20070720
  3. LISINOPRIL [Suspect]
     Indication: DIABETES MELLITUS
     Dosage: 5MG EVERY DAY PO
     Route: 048
     Dates: start: 20030225, end: 20070720

REACTIONS (1)
  - HYPERKALAEMIA [None]
